FAERS Safety Report 7364054-5 (Version None)
Quarter: 2011Q1

REPORT INFORMATION
  Report Type: 
  Country: None (occurrence: None)
  Receive Date: 20110321
  Receipt Date: 20110308
  Transmission Date: 20110831
  Serious: Yes (Other)
  Sender: FDA-Public Use
  Company Number: PHHY2011CA01755

PATIENT
  Sex: Male

DRUGS (2)
  1. NEXIUM [Concomitant]
  2. SANDOSTATIN LAR [Suspect]
     Indication: CARCINOID TUMOUR
     Dosage: 20 MG, EVERY 4 WEEKS
     Route: 030
     Dates: start: 20110104, end: 20110104

REACTIONS (4)
  - DISEASE PROGRESSION [None]
  - 5-HYDROXYINDOLACETIC ACID IN URINE INCREASED [None]
  - FLUSHING [None]
  - BLOOD CHROMOGRANIN A INCREASED [None]
